FAERS Safety Report 13546108 (Version 1)
Quarter: 2017Q2

REPORT INFORMATION
  Report Type: Spontaneous
  Country: US (occurrence: US)
  Receive Date: 20170515
  Receipt Date: 20170515
  Transmission Date: 20170830
  Serious: No
  Sender: FDA-Public Use
  Company Number: US-PFIZER INC-2017205960

PATIENT
  Sex: Female

DRUGS (1)
  1. XELJANZ XR [Suspect]
     Active Substance: TOFACITINIB CITRATE
     Dosage: 11 MG, DAILY

REACTIONS (20)
  - Hypoaesthesia [Unknown]
  - Fatigue [Unknown]
  - Myalgia [Unknown]
  - Memory impairment [Unknown]
  - Depression [Unknown]
  - Muscle spasms [Unknown]
  - Anxiety [Unknown]
  - Neck mass [Unknown]
  - Musculoskeletal stiffness [Unknown]
  - Arthropathy [Unknown]
  - Abdominal discomfort [Unknown]
  - Disturbance in attention [Unknown]
  - Pain [Unknown]
  - Malaise [Unknown]
  - Frustration tolerance decreased [Unknown]
  - Insomnia [Unknown]
  - Drug effect incomplete [Unknown]
  - Peripheral swelling [Unknown]
  - Arthralgia [Unknown]
  - Back pain [Unknown]
